FAERS Safety Report 4361000-3 (Version None)
Quarter: 2004Q2

REPORT INFORMATION
  Report Type: 
  Country: None (occurrence: None)
  Receive Date: 20040519
  Receipt Date: 20040519
  Transmission Date: 20050107
  Serious: Yes (Life-Threatening, Hospitalization)
  Sender: FDA-Public Use
  Company Number: None

PATIENT
  Age: 38 Year
  Sex: Male
  Weight: 77.1115 kg

DRUGS (7)
  1. PROCRIT (ERYTHROPOETIN) 40, 000 U Q WK [Suspect]
     Indication: ANAEMIA
     Dosage: 40,000 U SQ Q WEEK
     Route: 058
     Dates: start: 20030421, end: 20030529
  2. SUSTIVA [Concomitant]
  3. ZERIT [Concomitant]
  4. EPIVIR [Concomitant]
  5. DAPSONE [Concomitant]
  6. VIT B12 [Concomitant]
  7. FOLIC ACID [Concomitant]

REACTIONS (3)
  - DEEP VEIN THROMBOSIS [None]
  - OEDEMA PERIPHERAL [None]
  - PULMONARY EMBOLISM [None]
